FAERS Safety Report 7370208-4 (Version None)
Quarter: 2011Q1

REPORT INFORMATION
  Report Type: 
  Country: None (occurrence: None)
  Receive Date: 20110323
  Receipt Date: 20100316
  Transmission Date: 20110831
  Serious: No
  Sender: FDA-Public Use
  Company Number: US-ASTRAZENECA-2010SE11445

PATIENT
  Age: 72 Year
  Sex: Female

DRUGS (7)
  1. EYE DROPS [Concomitant]
  2. ZESTRIL [Suspect]
     Indication: HYPERTENSION
     Route: 048
     Dates: start: 20090901, end: 20100201
  3. LABOXIL [Concomitant]
     Indication: HYPOTHYROIDISM
  4. LABATOLOL [Concomitant]
  5. CLONIPINE [Concomitant]
  6. ALENDONATE [Concomitant]
     Indication: BONE DISORDER
  7. ZESTRIL [Suspect]
     Route: 048
     Dates: start: 20100201

REACTIONS (5)
  - DRUG INEFFECTIVE [None]
  - HEADACHE [None]
  - PALPITATIONS [None]
  - BALANCE DISORDER [None]
  - HYPERTENSION [None]
